FAERS Safety Report 10645029 (Version 1)
Quarter: 2014Q4

REPORT INFORMATION
  Report Type: Spontaneous
  Country: US (occurrence: None)
  Receive Date: 20141209
  Receipt Date: 20141209
  Transmission Date: 20150529
  Serious: Yes (Hospitalization)
  Sender: FDA-Public Use
  Company Number: 2653552

PATIENT
  Age: 49 Year
  Sex: Female

DRUGS (3)
  1. VANCOMYCIN HYDROCHLORIDE. [Suspect]
     Active Substance: VANCOMYCIN HYDROCHLORIDE
     Indication: UROSEPSIS
  2. CEFTRIAXONE. [Concomitant]
     Active Substance: CEFTRIAXONE
  3. ERTAPENEM [Concomitant]
     Active Substance: ERTAPENEM

REACTIONS (7)
  - Blister [None]
  - Erythema [None]
  - Skin exfoliation [None]
  - Oedema [None]
  - Dermatitis [None]
  - Acute generalised exanthematous pustulosis [None]
  - Nikolsky^s sign [None]
